FAERS Safety Report 9944085 (Version 14)
Quarter: 2015Q1

REPORT INFORMATION
  Report Type: Spontaneous
  Country: CA (occurrence: CA)
  Receive Date: 20140303
  Receipt Date: 20150219
  Transmission Date: 20150721
  Serious: Yes (Hospitalization, Other)
  Sender: FDA-Public Use
  Company Number: CA-PFIZER INC-2014058303

PATIENT
  Age: 64 Year
  Sex: Male

DRUGS (31)
  1. SOMAVERT [Suspect]
     Active Substance: PEGVISOMANT
     Dosage: 15 MG, 1X/DAY
     Route: 058
     Dates: end: 20150116
  2. NOVO-MELOXICAM [Concomitant]
     Dosage: 7.5 MG, 2X/DAY IN THE MORNING AND EVENING
  3. NEILMED SINUS RINSE [Concomitant]
     Dosage: 100ML (50 ML PER SIDE), 1X/DAY IN THE MORNING
     Route: 045
  4. VITAMIN D [Concomitant]
     Active Substance: CHOLECALCIFEROL
     Dosage: 1000 IU, 1X/DAY AFTER DINNER
  5. SOMAVERT [Suspect]
     Active Substance: PEGVISOMANT
     Indication: ACROMEGALY
     Dosage: 10 MG, 1X/DAY
     Route: 058
     Dates: start: 20131024, end: 20140324
  6. DULOXETINE [Concomitant]
     Active Substance: DULOXETINE
     Dosage: 60 MG, 1X/DAY IN THE MORNING
  7. TIAZAC XC [Concomitant]
     Active Substance: DILTIAZEM HYDROCHLORIDE
     Dosage: 360 MG, 1X/DAY IN THE EVENING
  8. PMS-CLONAZEPAM [Concomitant]
     Active Substance: CLONAZEPAM
     Dosage: 1.5 MG (3 X 0.5 MG PER NIGHT), 1X/DAY
  9. TEVA-MONTELUKAST [Concomitant]
     Dosage: 10 MG, 1X/DAY IN THE EVENING
     Dates: end: 201402
  10. CYMBALTA [Concomitant]
     Active Substance: DULOXETINE HYDROCHLORIDE
     Dosage: 30 MG, 1X/DAY IN THE MORNING
  11. CYMBALTA [Concomitant]
     Active Substance: DULOXETINE HYDROCHLORIDE
     Dosage: 120 MG, 1X/DAY IN MORNING
  12. ASA ENTERIC COATED [Concomitant]
     Dosage: 80 MG, 1X/DAY IN THE MORNING
  13. AVODART [Concomitant]
     Active Substance: DUTASTERIDE
     Dosage: 0.5 MG, 1X/DAY IN THE MORNING
  14. APO-ESOMEPRAZOLE MAGNESIUM [Concomitant]
     Dosage: 40 MG, 1X/DAY IN THE AFTERNOON
  15. RESTASIS [Concomitant]
     Active Substance: CYCLOSPORINE
     Dosage: 0.05 %, 3X/DAY (EVERY 8 HOURS)
     Route: 047
  16. SOMAVERT [Suspect]
     Active Substance: PEGVISOMANT
     Dosage: 10 MG, 1X/DAY
     Route: 058
     Dates: start: 201410
  17. SWISS MULTIVITAMIN 50+ [Concomitant]
     Dosage: 1/2 TABLET, 2X/DAY IN THE MORNING AND AFTER DINNER
  18. VITALUX-S [Concomitant]
     Dosage: UNK, 2X/DAY IN THE MORNING AND AFTER DINNER
  19. CETIRIZINE [Concomitant]
     Active Substance: CETIRIZINE HYDROCHLORIDE
     Dosage: 10 MG, 1X/DAY IN THE MORNING
  20. SDZ-VALSARTAN [Concomitant]
     Dosage: 160 MG, 2X/DAY IN THE MORNING AND AFTER DINNER
  21. PULMICORT TURBUHALER [Concomitant]
     Active Substance: BUDESONIDE
     Dosage: 0.5 ML, UNK
     Route: 045
     Dates: end: 201402
  22. OMEGA PLUS 3 [Concomitant]
     Dosage: 1000 MG, 1X/DAY MORNING
  23. APO-HYDRO [Concomitant]
     Active Substance: HYDROCHLOROTHIAZIDE
     Dosage: 25 MG, 1X/DAY IN THE AFTERNOON
  24. ELAVIL [Concomitant]
     Active Substance: AMITRIPTYLINE HYDROCHLORIDE
     Dosage: 25 MG, 1X/DAY IN THE EVENING
  25. TYLENOL ARTHRITIS PAIN [Concomitant]
     Active Substance: ACETAMINOPHEN
     Dosage: 1300 MG (650 MG X 2 IN THE MORNING AND AT 2 PM), 2X/DAY
  26. SOMAVERT [Suspect]
     Active Substance: PEGVISOMANT
     Dosage: 10 MG, 1X/DAY
     Route: 058
     Dates: start: 20140615, end: 20140701
  27. WELLBUTRIN SR [Concomitant]
     Active Substance: BUPROPION HYDROCHLORIDE
     Dosage: 100 MG, 1X/DAY IN THE MORNING
  28. PULMICORT TURBUHALER [Concomitant]
     Active Substance: BUDESONIDE
     Dosage: 0.5 ML MIXED 2 ML WITH 100 ML DISTILLED WATER, ONCE DAILY
     Route: 045
  29. APO-TIZANIDINE HYDROCHLORIDE [Concomitant]
     Dosage: 8 MG (2 X 4 MG), 1X/DAY IN THE EVENING
  30. SOMATULINE AUTOGEL [Concomitant]
     Active Substance: LANREOTIDE ACETATE
     Dosage: 120 MG, EVERY 28 DAYS
  31. SDZ-BUPROPION [Concomitant]
     Dosage: UNK, EVERY MORNING

REACTIONS (21)
  - Headache [Recovered/Resolved]
  - Blood pressure fluctuation [Recovered/Resolved]
  - Arthropathy [Recovered/Resolved]
  - Joint swelling [Not Recovered/Not Resolved]
  - Arthritis [Not Recovered/Not Resolved]
  - Sleep disorder [Not Recovered/Not Resolved]
  - Arthralgia [Recovered/Resolved]
  - Chest pain [Recovered/Resolved]
  - Malaise [Recovered/Resolved]
  - Macular degeneration [Not Recovered/Not Resolved]
  - Incision site complication [Not Recovered/Not Resolved]
  - Nausea [Recovered/Resolved]
  - Asthenia [Not Recovered/Not Resolved]
  - Depressed mood [Not Recovered/Not Resolved]
  - Abdominal pain [Recovered/Resolved]
  - Lethargy [Recovered/Resolved]
  - Hyperhidrosis [Not Recovered/Not Resolved]
  - Hearing impaired [Not Recovered/Not Resolved]
  - Pain [Not Recovered/Not Resolved]
  - Carpal tunnel syndrome [Recovered/Resolved]
  - Post procedural haemorrhage [Recovered/Resolved]

NARRATIVE: CASE EVENT DATE: 2014
